FAERS Safety Report 24133501 (Version 2)
Quarter: 2024Q3

REPORT INFORMATION
  Report Type: Spontaneous
  Country: CA (occurrence: CA)
  Receive Date: 20240724
  Receipt Date: 20240806
  Transmission Date: 20241017
  Serious: Yes (Other)
  Sender: AMERICAN REGENT
  Company Number: CA-AMERICAN REGENT INC-2024002816

PATIENT
  Sex: Female

DRUGS (2)
  1. VENOFER [Suspect]
     Active Substance: IRON SUCROSE
     Indication: Blood disorder
     Dosage: 200 MILLIGRAM EVERY TWO WEEKS
     Route: 042
  2. SOLU-MEDROL [Concomitant]
     Active Substance: METHYLPREDNISOLONE SODIUM SUCCINATE
     Indication: Premedication
     Dosage: UNK
     Route: 065

REACTIONS (3)
  - Inflammation [Unknown]
  - Epistaxis [Recovering/Resolving]
  - Muscle disorder [Unknown]
